FAERS Safety Report 4741892-6 (Version None)
Quarter: 2005Q3

REPORT INFORMATION
  Report Type: 
  Country: None (occurrence: None)
  Receive Date: 20050801
  Receipt Date: 20050620
  Transmission Date: 20060218
  Serious: No
  Sender: FDA-Public Use
  Company Number: 2005PV000090

PATIENT
  Age: 64 Year
  Sex: Male
  Weight: 92.5338 kg

DRUGS (6)
  1. BYETTA [Suspect]
     Indication: DIABETES MELLITUS NON-INSULIN-DEPENDENT
     Dosage: 5 UG;BID;SC
     Route: 058
     Dates: start: 20050614
  2. CARDIZEM [Concomitant]
  3. CARDURA [Concomitant]
  4. SYNTHROID [Concomitant]
  5. GLUCOVANCE [Concomitant]
  6. GLUCOGVANCE [Concomitant]

REACTIONS (5)
  - DIZZINESS [None]
  - ENERGY INCREASED [None]
  - HEADACHE [None]
  - INSOMNIA [None]
  - NAUSEA [None]
